FAERS Safety Report 12859326 (Version 1)
Quarter: 2016Q4

REPORT INFORMATION
  Report Type: Spontaneous
  Country: GB (occurrence: GB)
  Receive Date: 20161018
  Receipt Date: 20161018
  Transmission Date: 20170207
  Serious: Yes (Other)
  Sender: FDA-Public Use
  Company Number: GB-JNJFOC-20160826057

PATIENT
  Sex: Male

DRUGS (1)
  1. RISPERDAL CONSTA [Suspect]
     Active Substance: RISPERIDONE
     Indication: PRODUCT USED FOR UNKNOWN INDICATION
     Dosage: PATIENT HAD BEEN ON MEDICATION FOR MANY YEARS
     Route: 030

REACTIONS (4)
  - Wrong technique in product usage process [Unknown]
  - Syringe issue [Unknown]
  - Underdose [Unknown]
  - Off label use [Unknown]
